FAERS Safety Report 25760442 (Version 1)
Quarter: 2025Q3

REPORT INFORMATION
  Report Type: Spontaneous
  Country: GB (occurrence: GB)
  Receive Date: 20250904
  Receipt Date: 20250904
  Transmission Date: 20251020
  Serious: Yes (Other)
  Sender: SAMSUNG BIOEPIS
  Company Number: GB-ADVANZ PHARMA-202406005295

PATIENT
  Sex: Male

DRUGS (7)
  1. PYZCHIVA [Suspect]
     Active Substance: USTEKINUMAB-TTWE
     Indication: Product used for unknown indication
  2. LANREOTIDE ACETATE [Suspect]
     Active Substance: LANREOTIDE ACETATE
     Indication: Neuroendocrine tumour
     Dosage: 120MG/0.5ML, EVERY 28 DAYS (DEEP SUBCUTANEOUS);
     Route: 058
     Dates: start: 20240624
  3. LANREOTIDE ACETATE [Suspect]
     Active Substance: LANREOTIDE ACETATE
     Dosage: 120MG/0.5ML, EVERY 28 DAYS (DEEP SUBCUTANEOUS);
     Route: 058
     Dates: start: 20240624
  4. LANREOTIDE ACETATE [Suspect]
     Active Substance: LANREOTIDE ACETATE
     Dosage: 120MG/0.5ML, EVERY 28 DAYS (DEEP SUBCUTANEOUS);
     Route: 058
  5. LANREOTIDE ACETATE [Suspect]
     Active Substance: LANREOTIDE ACETATE
     Dosage: 120MG/0.5ML, EVERY 28 DAYS (DEEP SUBCUTANEOUS);
     Route: 058
  6. LERCANIDIPINE [Suspect]
     Active Substance: LERCANIDIPINE
     Indication: Product used for unknown indication
     Dosage: 10 MG, QD (2 MONTHS AGO);
  7. CALCIUM [Concomitant]
     Active Substance: CALCIUM
     Indication: Product used for unknown indication
     Dates: start: 202505

REACTIONS (27)
  - Hypertension [Unknown]
  - Blood pressure abnormal [Unknown]
  - Myalgia [Not Recovered/Not Resolved]
  - Headache [Unknown]
  - Muscle spasms [Unknown]
  - Diarrhoea [Unknown]
  - Fatigue [Unknown]
  - Flatulence [Not Recovered/Not Resolved]
  - Dyspnoea [Not Recovered/Not Resolved]
  - Balance disorder [Unknown]
  - Joint swelling [Not Recovered/Not Resolved]
  - Heart rate irregular [Unknown]
  - Musculoskeletal discomfort [Not Recovered/Not Resolved]
  - Fall [Unknown]
  - Constipation [Not Recovered/Not Resolved]
  - Muscle spasms [Recovering/Resolving]
  - Muscle spasms [Unknown]
  - Diarrhoea [Not Recovered/Not Resolved]
  - Gait disturbance [Unknown]
  - Sleep disorder [Unknown]
  - Pollakiuria [Unknown]
  - Anxiety [Unknown]
  - Migraine [Unknown]
  - Dizziness [Not Recovered/Not Resolved]
  - Treatment delayed [Unknown]
  - Product dose omission issue [Unknown]
  - Product supply issue [Unknown]

NARRATIVE: CASE EVENT DATE: 20250101
